FAERS Safety Report 9625457 (Version 2)
Quarter: 2013Q4

REPORT INFORMATION
  Report Type: Spontaneous
  Country: NL (occurrence: NL)
  Receive Date: 20131016
  Receipt Date: 20131206
  Transmission Date: 20140711
  Serious: Yes (Other)
  Sender: FDA-Public Use
  Company Number: NL-AMGEN-NLDSP2013072185

PATIENT
  Age: 66 Year
  Sex: Female

DRUGS (7)
  1. XGEVA [Suspect]
     Indication: METASTASES TO BONE
     Dosage: 120 MG, Q4WK
     Route: 065
     Dates: start: 20130125
  2. XGEVA [Suspect]
     Route: 065
  3. XGEVA [Suspect]
     Route: 065
  4. XGEVA [Suspect]
     Dosage: UNK
     Route: 065
  5. CALCI CHEW [Concomitant]
  6. GLUCADOL                           /00943602/ [Concomitant]
  7. LETROZOL [Concomitant]

REACTIONS (5)
  - Impaired healing [Unknown]
  - Dental fistula [Unknown]
  - Osteonecrosis of jaw [Unknown]
  - Pain in jaw [Unknown]
  - Musculoskeletal pain [Unknown]
